FAERS Safety Report 6718621-X (Version None)
Quarter: 2010Q2

REPORT INFORMATION
  Report Type: 
  Country: None (occurrence: None)
  Receive Date: 20100505
  Receipt Date: 20100426
  Transmission Date: 20101027
  Serious: Yes (Other)
  Sender: FDA-Public Use
  Company Number: 1000013543

PATIENT
  Sex: Female

DRUGS (2)
  1. MEMANTINE HCL [Suspect]
     Dosage: 5 MG (5 MG, 1 IN 1 D), ORAL
     Route: 048
  2. MEMANTINE HCL [Suspect]
     Dosage: 10 MG (10 MG, 1 IN 1 D), ORAL
     Route: 048

REACTIONS (2)
  - DEPRESSION [None]
  - NEGATIVE THOUGHTS [None]
